FAERS Safety Report 4987007-0 (Version None)
Quarter: 2006Q2

REPORT INFORMATION
  Report Type: 
  Country: None (occurrence: None)
  Receive Date: 20060427
  Receipt Date: 20060427
  Transmission Date: 20061013
  Serious: Yes (Hospitalization)
  Sender: FDA-Public Use
  Company Number: None

PATIENT
  Sex: Male

DRUGS (1)
  1. VIREAD [Suspect]
     Indication: HIV INFECTION
     Dosage: 300MG   ONCE DAILY  PO
     Route: 048
     Dates: start: 20041201, end: 20050110

REACTIONS (2)
  - DIALYSIS [None]
  - RENAL FAILURE ACUTE [None]
